FAERS Safety Report 18203884 (Version 1)
Quarter: 2020Q3

REPORT INFORMATION
  Report Type: Report from Study
  Country: None (occurrence: IL)
  Receive Date: 20200827
  Receipt Date: 20200827
  Transmission Date: 20201103
  Serious: Yes (Hospitalization)
  Sender: FDA-Public Use
  Company Number: IL-ABBVIE-20K-082-3536792-00

PATIENT
  Age: 27 Year
  Sex: Female

DRUGS (2)
  1. HUMIRA [Suspect]
     Active Substance: ADALIMUMAB
     Indication: CROHN^S DISEASE
     Route: 058
  2. HUMIRA [Suspect]
     Active Substance: ADALIMUMAB
     Indication: CROHN^S DISEASE
     Route: 058
     Dates: start: 20190718

REACTIONS (7)
  - Urinary tract infection [Unknown]
  - Wrong technique in product usage process [Recovered/Resolved]
  - Urinary tract inflammation [Not Recovered/Not Resolved]
  - Device difficult to use [Unknown]
  - Vesical fistula [Unknown]
  - Defaecation disorder [Unknown]
  - Wrong technique in product usage process [Unknown]
